FAERS Safety Report 7973248-7 (Version None)
Quarter: 2011Q4

REPORT INFORMATION
  Report Type: 
  Country: None (occurrence: None)
  Receive Date: 20111213
  Receipt Date: 20111201
  Transmission Date: 20120403
  Serious: Yes (Other)
  Sender: FDA-Public Use
  Company Number: PHHY2011US54625

PATIENT
  Sex: Female
  Weight: 76 kg

DRUGS (8)
  1. EXJADE [Suspect]
     Dosage: 500 MG, BID
     Route: 048
  2. HYDREA [Concomitant]
  3. METFORMIN HCL [Concomitant]
     Dosage: 500 MG, BID
     Route: 048
  4. PRAVASTATIN SODIUM [Concomitant]
     Dosage: 20 MG, DAILY
     Route: 048
  5. EXJADE [Suspect]
     Dosage: 2000 MG, QD
     Route: 048
  6. METOPROLOL TARTRATE [Concomitant]
     Dosage: 25 MG, BID
     Route: 048
  7. EXJADE [Suspect]
     Indication: BLOOD IRON INCREASED
     Dosage: 1000 MG, BID
     Route: 048
     Dates: start: 20110608
  8. EXJADE [Suspect]
     Dosage: 500 MG, BID
     Route: 048

REACTIONS (16)
  - NAUSEA [None]
  - PRURITUS [None]
  - VISION BLURRED [None]
  - HYPOPHAGIA [None]
  - HAEMOGLOBIN DECREASED [None]
  - DECREASED APPETITE [None]
  - NIGHT SWEATS [None]
  - ABDOMINAL PAIN [None]
  - DIARRHOEA [None]
  - HYPERHIDROSIS [None]
  - RASH PRURITIC [None]
  - TOXICITY TO VARIOUS AGENTS [None]
  - DIZZINESS [None]
  - VOMITING [None]
  - FAECES DISCOLOURED [None]
  - ABDOMINAL DISCOMFORT [None]
